FAERS Safety Report 14487671 (Version 1)
Quarter: 2018Q1

REPORT INFORMATION
  Report Type: Spontaneous
  Country: US (occurrence: US)
  Receive Date: 20180205
  Receipt Date: 20180205
  Transmission Date: 20180509
  Serious: Yes (Hospitalization)
  Sender: FDA-Public Use
  Company Number: US-PFIZER INC-2018047888

PATIENT
  Age: 55 Year
  Sex: Male
  Weight: 58.6 kg

DRUGS (1)
  1. VFEND [Suspect]
     Active Substance: VORICONAZOLE
     Dosage: 200 MG, 2X/DAY (TABLET BY MOUTH 1 TABLET IN MORNING AND 1 AT NIGHT)
     Route: 048

REACTIONS (2)
  - Memory impairment [Unknown]
  - Oxygen saturation decreased [Unknown]
